FAERS Safety Report 12138086 (Version 2)
Quarter: 2016Q1

REPORT INFORMATION
  Report Type: Spontaneous
  Country: US (occurrence: US)
  Receive Date: 20160302
  Receipt Date: 20160317
  Transmission Date: 20160526
  Serious: Yes (Other)
  Sender: FDA-Public Use
  Company Number: US-BAYER-2016-040524

PATIENT
  Age: 72 Year
  Sex: Male
  Weight: 94.78 kg

DRUGS (9)
  1. MIRALAX [Suspect]
     Active Substance: POLYETHYLENE GLYCOL 3350
     Indication: COLONOSCOPY
     Dosage: 1 DF (4 OZ WITH 32OZ OF GATORADE), QD (FOR 3 DAYS)
     Route: 048
     Dates: start: 20160228
  2. METFORMIN [Concomitant]
     Active Substance: METFORMIN HYDROCHLORIDE
  3. MULTAQ [Concomitant]
     Active Substance: DRONEDARONE
  4. INSULIN [Concomitant]
     Active Substance: INSULIN NOS
  5. ZOCOR [Concomitant]
     Active Substance: SIMVASTATIN
  6. DULCOLAX (DOCUSATE SODIUM) [Concomitant]
     Active Substance: DOCUSATE SODIUM
  7. METOPROLOL. [Concomitant]
     Active Substance: METOPROLOL
  8. ISOSORBIDE. [Concomitant]
     Active Substance: ISOSORBIDE
  9. LASIX [Concomitant]
     Active Substance: FUROSEMIDE

REACTIONS (3)
  - Off label use [None]
  - Haematochezia [Recovered/Resolved]
  - Wrong technique in product usage process [None]

NARRATIVE: CASE EVENT DATE: 201602
